FAERS Safety Report 17473125 (Version 1)
Quarter: 2020Q1

REPORT INFORMATION
  Report Type: Spontaneous
  Country: US (occurrence: US)
  Receive Date: 20200228
  Receipt Date: 20200228
  Transmission Date: 20200409
  Serious: Yes (Death, Hospitalization)
  Sender: FDA-Public Use
  Company Number: US-MYLANLABS-2020M1020995

PATIENT
  Age: 23 Year
  Sex: Female

DRUGS (10)
  1. NOREPINEPHRINE. [Suspect]
     Active Substance: NOREPINEPHRINE
     Indication: TOXICITY TO VARIOUS AGENTS
     Dosage: DRIP
     Route: 065
  2. TRAZODONE [Suspect]
     Active Substance: TRAZODONE HYDROCHLORIDE
     Indication: PRODUCT USED FOR UNKNOWN INDICATION
     Dosage: UNK
     Route: 048
  3. SODIUM BICARBONATE. [Suspect]
     Active Substance: SODIUM BICARBONATE
     Indication: TOXICITY TO VARIOUS AGENTS
     Route: 065
  4. ATROPINE/DIPHENOXYLATE [Suspect]
     Active Substance: ATROPINE\DIPHENOXYLATE
     Indication: DRUG DEPENDENCE
     Dosage: UNK
     Route: 048
  5. NALOXONE [Suspect]
     Active Substance: NALOXONE
     Indication: TOXICITY TO VARIOUS AGENTS
     Dosage: UNK
     Route: 065
  6. LOPERAMIDE [Suspect]
     Active Substance: LOPERAMIDE
     Indication: DRUG DEPENDENCE
     Dosage: UNK
     Route: 048
  7. AMIODARONE [Suspect]
     Active Substance: AMIODARONE
     Indication: TOXICITY TO VARIOUS AGENTS
     Dosage: UNK
     Route: 065
  8. MAGNESIUM [Suspect]
     Active Substance: MAGNESIUM
     Indication: TOXICITY TO VARIOUS AGENTS
     Route: 065
  9. EPINEPHRINE. [Suspect]
     Active Substance: EPINEPHRINE
     Indication: TOXICITY TO VARIOUS AGENTS
     Dosage: DRIP
     Route: 065
  10. VASOPRESSIN. [Suspect]
     Active Substance: VASOPRESSIN
     Indication: TOXICITY TO VARIOUS AGENTS
     Dosage: DRIP
     Route: 065

REACTIONS (15)
  - Cyanosis [Fatal]
  - Pneumonia [Fatal]
  - Unresponsive to stimuli [Fatal]
  - Toxicity to various agents [Fatal]
  - Cerebral ischaemia [Fatal]
  - Brain oedema [Fatal]
  - Acute myocardial infarction [Fatal]
  - Pulmonary embolism [Fatal]
  - Brain death [Fatal]
  - Diffuse alveolar damage [Fatal]
  - Hypotension [Fatal]
  - Pulmonary oedema [Fatal]
  - Brain injury [Fatal]
  - Tachycardia [Fatal]
  - Drug ineffective [Fatal]
